FAERS Safety Report 4485412-2 (Version None)
Quarter: 2004Q4

REPORT INFORMATION
  Report Type: 
  Country: None (occurrence: None)
  Receive Date: 20041026
  Receipt Date: 20041015
  Transmission Date: 20050328
  Serious: Yes (Hospitalization)
  Sender: FDA-Public Use
  Company Number: US-ABBOTT-04P-163-0277616-00

PATIENT
  Sex: Male
  Weight: 77.18 kg

DRUGS (6)
  1. DEPAKOTE [Suspect]
     Indication: CONVULSION
     Route: 048
     Dates: start: 20041001
  2. DEPAKOTE [Suspect]
     Route: 048
     Dates: start: 20040301, end: 20041001
  3. ALPRAZOLAM [Concomitant]
  4. CELECOXIB [Concomitant]
     Indication: ARTHRITIS
  5. SERETIDE MITE [Concomitant]
     Indication: EMPHYSEMA
     Dosage: 250/50
     Route: 055
  6. FLOMAX [Concomitant]
     Indication: UNEVALUABLE EVENT

REACTIONS (5)
  - CHEST PAIN [None]
  - CONDITION AGGRAVATED [None]
  - DYSPNOEA EXACERBATED [None]
  - IMPAIRED DRIVING ABILITY [None]
  - PANIC DISORDER [None]
